FAERS Safety Report 14988334 (Version 2)
Quarter: 2018Q2

REPORT INFORMATION
  Report Type: Spontaneous
  Country: US (occurrence: US)
  Receive Date: 20180608
  Receipt Date: 20180625
  Transmission Date: 20180711
  Serious: Yes (Other)
  Sender: FDA-Public Use
  Company Number: US-SA-2017SA252452

PATIENT
  Age: 55 Year
  Sex: Female
  Weight: 81 kg

DRUGS (9)
  1. ADRIAMYCIN [DOXORUBICIN] [Concomitant]
     Dosage: 110 MG,Q3W
     Route: 065
     Dates: start: 20110721, end: 20110721
  2. CYTOXAN [Concomitant]
     Active Substance: CYCLOPHOSPHAMIDE
     Dosage: 1100 MG,QCY
     Route: 065
     Dates: start: 20110721, end: 20110721
  3. TAXOTERE [Suspect]
     Active Substance: DOCETAXEL
     Dosage: 50 MG,Q3W
     Route: 065
     Dates: start: 20111013, end: 20111013
  4. ADRIAMYCIN [DOXORUBICIN] [Concomitant]
     Dosage: 110 MG,Q3W
     Route: 065
     Dates: start: 20111013, end: 20111013
  5. TAXOTERE [Suspect]
     Active Substance: DOCETAXEL
     Indication: BREAST CANCER FEMALE
     Dosage: 50 MG,Q3W
     Route: 042
     Dates: start: 20110721, end: 20110721
  6. NEOSAR [Concomitant]
     Active Substance: CYCLOPHOSPHAMIDE
     Route: 065
  7. DOXYCYCLINE HYDROCHLORIDE [Concomitant]
     Active Substance: DOXYCYCLINE HYDROCHLORIDE
     Route: 065
  8. SYNTHROID [Concomitant]
     Active Substance: LEVOTHYROXINE SODIUM
     Dosage: UNK UNK,UNK
     Route: 065
     Dates: start: 20090101
  9. CYTOXAN [Concomitant]
     Active Substance: CYCLOPHOSPHAMIDE
     Dosage: 1100 MG,QCY
     Route: 065
     Dates: start: 20111013, end: 20111013

REACTIONS (2)
  - Psychological trauma [Unknown]
  - Alopecia [Recovering/Resolving]

NARRATIVE: CASE EVENT DATE: 20110901
